FAERS Safety Report 9548810 (Version 1)
Quarter: 2013Q3

REPORT INFORMATION
  Report Type: Spontaneous
  Country: US (occurrence: None)
  Receive Date: 20130724
  Receipt Date: 20130724
  Transmission Date: 20140515
  Serious: Yes (Hospitalization)
  Sender: FDA-Public Use
  Company Number: PHEH2012US015233

PATIENT
  Age: 28 Year
  Sex: Male

DRUGS (4)
  1. FANAPT (ILOPERIDONE) UNKNOWN [Suspect]
     Indication: SCHIZOPHRENIA
     Dates: start: 20120206, end: 20120705
  2. VISTARIL ? [Suspect]
     Indication: SCHIZOPHRENIA
  3. ALKA-SELTZER [Suspect]
  4. PROZAC (FLUOXETINE HYDROCHLORIDE) [Concomitant]

REACTIONS (1)
  - Priapism [None]
